FAERS Safety Report 5119000-1 (Version None)
Quarter: 2006Q3

REPORT INFORMATION
  Report Type: 
  Country: None (occurrence: None)
  Receive Date: 20060927
  Receipt Date: 20060918
  Transmission Date: 20061208
  Serious: Yes (Other)
  Sender: FDA-Public Use
  Company Number: UA-2006-027284

PATIENT
  Age: 43 Year
  Sex: Female

DRUGS (1)
  1. MIRENA [Suspect]
     Indication: CONTRACEPTION
     Dosage: 20 UG/DAY, CONTR, INTRA-UTERINE
     Route: 015
     Dates: start: 20060725, end: 20060912

REACTIONS (1)
  - DISSEMINATED INTRAVASCULAR COAGULATION [None]
